FAERS Safety Report 16259872 (Version 2)
Quarter: 2019Q2

REPORT INFORMATION
  Report Type: Spontaneous
  Country: US (occurrence: US)
  Receive Date: 20190501
  Receipt Date: 20190513
  Transmission Date: 20190711
  Serious: No
  Sender: FDA-Public Use
  Company Number: US-GLAXOSMITHKLINE-US2019076083

PATIENT
  Sex: Female

DRUGS (1)
  1. EXCEDRIN PM TRIPLE ACTION CAPLETS [Suspect]
     Active Substance: ACETAMINOPHEN\ASPIRIN\DIPHENHYDRAMINE CITRATE
     Indication: ARTHRITIS
     Dosage: UNK
     Dates: start: 1999

REACTIONS (3)
  - Product use in unapproved indication [Unknown]
  - Dysgeusia [Recovered/Resolved]
  - Somnolence [Unknown]
